FAERS Safety Report 15753455 (Version 1)
Quarter: 2018Q4

REPORT INFORMATION
  Report Type: Spontaneous
  Country: US (occurrence: US)
  Receive Date: 20181222
  Receipt Date: 20181222
  Transmission Date: 20190205
  Serious: No
  Sender: FDA-Public Use
  Company Number: US-MALLINCKRODT-T201803384

PATIENT
  Sex: Male
  Weight: 82 kg

DRUGS (1)
  1. FENTANYL TRANSDERMAL SYSTEM [Suspect]
     Active Substance: FENTANYL
     Indication: PAIN
     Dosage: 75 MCG/HR, EVERY THREE DAYS
     Route: 062
     Dates: start: 2018

REACTIONS (5)
  - Lip swelling [Unknown]
  - Dry mouth [Unknown]
  - Mouth swelling [Unknown]
  - Oral mucosal exfoliation [Unknown]
  - Gingival swelling [Unknown]

NARRATIVE: CASE EVENT DATE: 2018
